FAERS Safety Report 19877936 (Version 1)
Quarter: 2021Q3

REPORT INFORMATION
  Report Type: Spontaneous
  Country: AR (occurrence: AR)
  Receive Date: 20210923
  Receipt Date: 20210923
  Transmission Date: 20211014
  Serious: Yes (Hospitalization)
  Sender: FDA-Public Use
  Company Number: AR-BIOMARINAP-AR-2021-138589

PATIENT
  Age: 5 Year
  Sex: Male
  Weight: 14.2 kg

DRUGS (1)
  1. NAGLAZYME [Suspect]
     Active Substance: GALSULFASE
     Indication: MUCOPOLYSACCHARIDOSIS VI
     Dosage: 1 MILLIGRAM/KILOGRAM, QW
     Route: 042

REACTIONS (3)
  - Pyrexia [Recovering/Resolving]
  - Vomiting [Recovering/Resolving]
  - Urinary tract infection [Recovering/Resolving]

NARRATIVE: CASE EVENT DATE: 20210913
